FAERS Safety Report 6615467-8 (Version None)
Quarter: 2010Q1

REPORT INFORMATION
  Report Type: 
  Country: None (occurrence: None)
  Receive Date: 20100305
  Receipt Date: 20100222
  Transmission Date: 20100710
  Serious: Yes (Life-Threatening, Hospitalization, Disabling, Other)
  Sender: FDA-Public Use
  Company Number: JP-PFIZER INC-2009236966

PATIENT
  Age: 54 Year
  Sex: Male
  Weight: 75.6 kg

DRUGS (10)
  1. SUNITINIB MALATE [Suspect]
     Indication: RENAL CELL CARCINOMA
     Dosage: 50 MG, 1X/DAY
     Route: 048
     Dates: start: 20090608
  2. NOVAMIN [Concomitant]
     Dosage: UNK
     Route: 048
     Dates: end: 20090706
  3. MAG-LAX [Concomitant]
     Dosage: UNK
     Route: 048
     Dates: end: 20090706
  4. OMEPRAL [Concomitant]
     Route: 048
  5. AMLODIPINE BESILATE [Concomitant]
     Route: 048
  6. MOBIC [Concomitant]
     Dosage: UNK
     Route: 048
  7. BLOPRESS [Concomitant]
     Dosage: UNK
     Route: 048
  8. OXYCONTIN [Concomitant]
     Dosage: UNK
     Route: 048
     Dates: end: 20090704
  9. ZOMETA [Concomitant]
     Dosage: UNK
     Route: 042
  10. OIF [Concomitant]

REACTIONS (5)
  - ABDOMINAL DISCOMFORT [None]
  - ELECTROCARDIOGRAM T WAVE INVERSION [None]
  - NEUTROPHIL COUNT DECREASED [None]
  - TROPONIN INCREASED [None]
  - WHITE BLOOD CELL COUNT DECREASED [None]
